FAERS Safety Report 23900119 (Version 1)
Quarter: 2024Q2

REPORT INFORMATION
  Report Type: Spontaneous
  Country: US (occurrence: None)
  Receive Date: 20240526
  Receipt Date: 20240526
  Transmission Date: 20240716
  Serious: No
  Sender: FDA-Public Use
  Company Number: US-ROCHE-3326772

PATIENT
  Sex: Female
  Weight: 51.756 kg

DRUGS (5)
  1. OCREVUS [Suspect]
     Active Substance: OCRELIZUMAB
     Indication: Multiple sclerosis
     Dosage: YES?LAST INFUSION DATE OF 02/MAR/2023.
     Route: 042
     Dates: start: 20230216
  2. GABAPENTIN [Concomitant]
     Active Substance: GABAPENTIN
     Dosage: YES
     Route: 048
     Dates: start: 2020
  3. ARMOUR THYROID [Concomitant]
     Active Substance: THYROID, PORCINE
     Indication: Autoimmune thyroiditis
     Dosage: YES
     Route: 048
     Dates: start: 2012
  4. TYLENOL [Concomitant]
     Active Substance: ACETAMINOPHEN
  5. COPAXONE [Concomitant]
     Active Substance: GLATIRAMER ACETATE

REACTIONS (1)
  - Headache [Not Recovered/Not Resolved]
